FAERS Safety Report 4410036-2 (Version None)
Quarter: 2004Q3

REPORT INFORMATION
  Report Type: 
  Country: None (occurrence: None)
  Receive Date: 20040723
  Receipt Date: 20040715
  Transmission Date: 20050211
  Serious: Yes (Hospitalization)
  Sender: FDA-Public Use
  Company Number: 2004UW13282

PATIENT
  Age: 73 Year
  Sex: Female

DRUGS (6)
  1. LOSEC [Suspect]
     Indication: GASTROOESOPHAGEAL REFLUX DISEASE
     Dosage: 20 MG BID PO
     Route: 048
     Dates: start: 20000101, end: 20040201
  2. COVERSYL [Concomitant]
  3. HYDROCHLOROTHIAZIDE [Concomitant]
  4. NORVASC [Concomitant]
  5. METOPROLOL [Concomitant]
  6. ASPIRIN [Concomitant]

REACTIONS (8)
  - BLOOD PRESSURE INCREASED [None]
  - DIARRHOEA [None]
  - FEELING ABNORMAL [None]
  - NAUSEA [None]
  - NEPHRITIS INTERSTITIAL [None]
  - OEDEMA PERIPHERAL [None]
  - RENAL FAILURE ACUTE [None]
  - VOMITING [None]
